FAERS Safety Report 15244770 (Version 1)
Quarter: 2018Q3

REPORT INFORMATION
  Report Type: Report from Study
  Country: US (occurrence: US)
  Receive Date: 20180806
  Receipt Date: 20180806
  Transmission Date: 20181010
  Serious: Yes (Other)
  Sender: FDA-Public Use
  Company Number: US-SHIRE-US201829096

PATIENT
  Age: 75 Year
  Sex: Female

DRUGS (4)
  1. KEYTRUDA [Concomitant]
     Active Substance: PEMBROLIZUMAB
     Indication: PRODUCT USED FOR UNKNOWN INDICATION
  2. NATPARA (PARATHYROID HORMONE) [Suspect]
     Active Substance: PARATHYROID HORMONE
     Indication: OFF LABEL USE
  3. NATPARA (PARATHYROID HORMONE) [Suspect]
     Active Substance: PARATHYROID HORMONE
     Indication: HYPOCALCAEMIA
     Dosage: 50 ?G, 1X/DAY:QD
     Route: 058
  4. LASIX [Concomitant]
     Active Substance: FUROSEMIDE
     Indication: HYPONATRAEMIA

REACTIONS (5)
  - Gait inability [Unknown]
  - Non-small cell lung cancer [Unknown]
  - Hyponatraemia [Unknown]
  - Motor dysfunction [Unknown]
  - Off label use [Unknown]

NARRATIVE: CASE EVENT DATE: 201803
